FAERS Safety Report 12419303 (Version 7)
Quarter: 2018Q1

REPORT INFORMATION
  Report Type: Spontaneous
  Country: JP (occurrence: JP)
  Receive Date: 20160531
  Receipt Date: 20180110
  Transmission Date: 20180508
  Serious: Yes (Hospitalization, Other)
  Sender: FDA-Public Use
  Company Number: JP-CELGENEUS-JPN-2016015997

PATIENT
  Age: 67 Year
  Sex: Male
  Weight: 71.9 kg

DRUGS (195)
  1. LOXOPROFEN SODIUM [Concomitant]
     Active Substance: LOXOPROFEN SODIUM
     Route: 065
     Dates: start: 20110525, end: 20140114
  2. BAKTAR [Concomitant]
     Active Substance: SULFAMETHOXAZOLE\TRIMETHOPRIM
     Route: 065
     Dates: start: 20160210, end: 20160727
  3. FLUCONAZOLE. [Concomitant]
     Active Substance: FLUCONAZOLE
     Route: 065
     Dates: start: 20160213, end: 20171223
  4. SODIUM PICOSULFATE [Concomitant]
     Active Substance: SODIUM PICOSULFATE
     Route: 065
     Dates: start: 20160224, end: 20160319
  5. HEPARINOID FROM ANIMAL ORGANS [Concomitant]
     Indication: PRODUCT USED FOR UNKNOWN INDICATION
     Route: 065
     Dates: start: 20120104, end: 20160125
  6. MONOAMMONIUM GLYCYRRHIZINATE [Concomitant]
     Active Substance: AMMONIUM GLYCYRRHIZATE
     Indication: ADVERSE EVENT
     Route: 065
     Dates: start: 20120927, end: 20121024
  7. KN1 [Concomitant]
     Indication: ADVERSE EVENT
     Route: 065
     Dates: start: 20130117, end: 20130124
  8. PL GRANULE [Concomitant]
     Route: 065
     Dates: start: 20131204, end: 20131209
  9. DEQUALINIUM CHLORIDE [Concomitant]
     Active Substance: DEQUALINIUM CHLORIDE
     Route: 065
     Dates: start: 20131204, end: 20131217
  10. SODIUM CROMOGLICATE [Concomitant]
     Active Substance: CROMOLYN SODIUM
     Indication: PRODUCT USED FOR UNKNOWN INDICATION
     Route: 065
     Dates: start: 20140226, end: 20160125
  11. SODIUM CROMOGLICATE [Concomitant]
     Active Substance: CROMOLYN SODIUM
     Route: 065
     Dates: start: 20160921
  12. FEXOFENADINE HYDROCHLORIDE. [Concomitant]
     Active Substance: FEXOFENADINE HYDROCHLORIDE
     Route: 065
     Dates: start: 20160824, end: 20160906
  13. CEFEPIME [Concomitant]
     Active Substance: CEFEPIME HYDROCHLORIDE
     Route: 065
     Dates: start: 20150107, end: 20150107
  14. NORMAL SALINE [Concomitant]
     Active Substance: SODIUM CHLORIDE
     Indication: ADVERSE EVENT
     Route: 065
     Dates: start: 20141105, end: 20141105
  15. WARFARIN POTASSIUM [Concomitant]
     Active Substance: WARFARIN POTASSIUM
     Route: 065
     Dates: start: 20141126, end: 20150304
  16. OXETHAZAINE [Concomitant]
     Active Substance: OXETHAZAINE
     Indication: ADVERSE EVENT
     Route: 065
     Dates: start: 20150729, end: 20150818
  17. FULCALIQ [Concomitant]
     Active Substance: AMINO ACIDS\CARBOHYDRATES\ELECTROLYTES NOS\VITAMINS
     Indication: ADVERSE EVENT
     Route: 065
     Dates: start: 20160128, end: 20160131
  18. ALBUMINAR [Concomitant]
     Active Substance: ALBUMIN HUMAN
     Indication: ADVERSE EVENT
     Route: 065
     Dates: start: 20160128, end: 20160128
  19. BFLUID [Concomitant]
     Active Substance: AMINO ACIDS\DEXTROSE\ELECTROLYTES NOS\VITAMINS
     Indication: ADVERSE EVENT
     Route: 065
     Dates: start: 20160201, end: 20160201
  20. HALOPERIDOL. [Concomitant]
     Active Substance: HALOPERIDOL
     Route: 065
     Dates: start: 20160212, end: 20160221
  21. ELENTAL [Concomitant]
     Active Substance: AMINO ACIDS\CARBOHYDRATES\MINERALS\SOYBEAN OIL\VITAMINS
     Indication: ADVERSE EVENT
     Route: 065
     Dates: start: 20160216, end: 20160219
  22. GLYCERIN. [Concomitant]
     Active Substance: GLYCERIN
     Indication: ADVERSE EVENT
     Route: 065
     Dates: start: 20160224, end: 20160430
  23. CARBAZOCHROME SODIUM SULFONATE HYDRATE [Concomitant]
     Indication: ADVERSE EVENT
     Route: 065
     Dates: start: 20160226, end: 20160228
  24. LULU [Concomitant]
     Indication: ADVERSE EVENT
     Route: 065
     Dates: start: 20170819, end: 20170819
  25. DEXAMETHASONE. [Suspect]
     Active Substance: DEXAMETHASONE
     Route: 065
     Dates: start: 20160511
  26. LANSOPRAZOLE. [Concomitant]
     Active Substance: LANSOPRAZOLE
     Indication: PRODUCT USED FOR UNKNOWN INDICATION
     Route: 065
     Dates: start: 20111122, end: 20141021
  27. ASPIRIN. [Concomitant]
     Active Substance: ASPIRIN
     Route: 065
     Dates: start: 20130130, end: 20130430
  28. SENNOSIDE [Concomitant]
     Active Substance: SENNOSIDES
     Route: 065
     Dates: start: 20160224, end: 20160514
  29. EURAX H [Concomitant]
     Indication: PRODUCT USED FOR UNKNOWN INDICATION
     Route: 065
     Dates: start: 20120111, end: 20120113
  30. ZOLEDRONIC ACID HYDRATE [Concomitant]
     Active Substance: ZOLEDRONIC ACID
     Indication: PRODUCT USED FOR UNKNOWN INDICATION
     Route: 065
     Dates: start: 20120213, end: 20120213
  31. PREGABALIN. [Concomitant]
     Active Substance: PREGABALIN
     Route: 065
     Dates: start: 20120920, end: 20160128
  32. PREGABALIN. [Concomitant]
     Active Substance: PREGABALIN
     Route: 065
     Dates: start: 20160415
  33. LEVOFLOXACIN. [Concomitant]
     Active Substance: LEVOFLOXACIN
     Route: 065
     Dates: start: 20130522, end: 20130526
  34. LEVOFLOXACIN. [Concomitant]
     Active Substance: LEVOFLOXACIN
     Route: 065
     Dates: start: 20160210, end: 20160425
  35. CEFDITOREN PIVOXIL. [Concomitant]
     Active Substance: CEFDITOREN PIVOXIL
     Indication: ADVERSE EVENT
     Route: 065
     Dates: start: 20140601, end: 20140604
  36. GATIFLOXACIN HYDRATE [Concomitant]
     Indication: ADVERSE EVENT
     Route: 065
     Dates: start: 20130110, end: 20130307
  37. SODIUM GUALENATE HYDRATE [Concomitant]
     Active Substance: SODIUM GUALENATE MONOHYDRATE
     Route: 065
     Dates: start: 20160328
  38. CEFEPIME [Concomitant]
     Active Substance: CEFEPIME HYDROCHLORIDE
     Indication: ADVERSE EVENT
     Route: 065
     Dates: start: 20141105, end: 20141112
  39. FELBINAC [Concomitant]
     Active Substance: FELBINAC
     Indication: ADVERSE EVENT
     Route: 065
     Dates: start: 20141106, end: 20141113
  40. SITAFLOXACIN HYDRATE [Concomitant]
     Indication: ADVERSE EVENT
     Route: 065
     Dates: start: 20141113, end: 20141117
  41. SUCRALFATE HYDRATE [Concomitant]
     Indication: ADVERSE EVENT
     Route: 065
     Dates: start: 20150304, end: 20150311
  42. MIYA-BM [Concomitant]
     Active Substance: CLOSTRIDIUM BUTYRICUM SPORES STRAIN M-55
     Route: 065
     Dates: start: 20150826, end: 20160128
  43. VITAMEDIN [Concomitant]
     Active Substance: CYANOCOBALAMIN\PYRIDOXINE HYDROCHLORIDE\THIAMINE
     Indication: ADVERSE EVENT
     Route: 065
     Dates: start: 20160127, end: 20160127
  44. METHYLPREDNISOLONE SODIUM SUCCINATE. [Concomitant]
     Active Substance: METHYLPREDNISOLONE SODIUM SUCCINATE
     Indication: ADVERSE EVENT
     Route: 065
     Dates: start: 20160128, end: 20160205
  45. MIDAZOLAM [Concomitant]
     Active Substance: MIDAZOLAM HYDROCHLORIDE
     Indication: ADVERSE EVENT
     Route: 065
     Dates: start: 20160128, end: 20160207
  46. FENTANYL CITRATE. [Concomitant]
     Active Substance: FENTANYL CITRATE
     Indication: ADVERSE EVENT
     Route: 065
     Dates: start: 20160128, end: 20160207
  47. POTASSIUM CHLORIDE. [Concomitant]
     Active Substance: POTASSIUM CHLORIDE
     Indication: ADVERSE EVENT
     Route: 065
     Dates: start: 20160128, end: 20160128
  48. GLUCOSE [Concomitant]
     Active Substance: DEXTROSE
     Indication: ADVERSE EVENT
     Route: 065
     Dates: start: 20160202, end: 20160206
  49. FLUNITRAZEPAM [Concomitant]
     Active Substance: FLUNITRAZEPAM
     Indication: ADVERSE EVENT
     Route: 065
     Dates: start: 20160302, end: 20160324
  50. LOXOPROFEN SODIUM [Concomitant]
     Active Substance: LOXOPROFEN SODIUM
     Indication: PRODUCT USED FOR UNKNOWN INDICATION
     Route: 065
     Dates: start: 20111213
  51. LOXOPROFEN SODIUM [Concomitant]
     Active Substance: LOXOPROFEN SODIUM
     Route: 065
     Dates: start: 20160301
  52. ACICLOVIR [Concomitant]
     Active Substance: ACYCLOVIR
     Indication: PRODUCT USED FOR UNKNOWN INDICATION
     Route: 065
     Dates: start: 20111122
  53. ASPIRIN. [Concomitant]
     Active Substance: ASPIRIN
     Indication: PRODUCT USED FOR UNKNOWN INDICATION
     Route: 065
     Dates: start: 20111122, end: 20130109
  54. ZOLEDRONIC ACID HYDRATE [Concomitant]
     Active Substance: ZOLEDRONIC ACID
     Route: 065
     Dates: start: 20120326, end: 20120326
  55. PURIFIED SODIUM HYALURONATE [Concomitant]
     Route: 065
     Dates: start: 20121127, end: 20121228
  56. LIDOCAINE. [Concomitant]
     Active Substance: LIDOCAINE
     Indication: PRODUCT USED FOR UNKNOWN INDICATION
     Route: 065
     Dates: start: 20120718, end: 20120731
  57. PREGABALIN. [Concomitant]
     Active Substance: PREGABALIN
     Route: 065
     Dates: start: 20120827, end: 20120910
  58. INDOMETACIN [Concomitant]
     Active Substance: INDOMETHACIN
     Indication: PRODUCT USED FOR UNKNOWN INDICATION
     Route: 065
     Dates: start: 20120910, end: 20121010
  59. TIAPROFENIC ACID [Concomitant]
     Active Substance: TIAPROFENIC ACID
     Indication: PRODUCT USED FOR UNKNOWN INDICATION
     Route: 065
     Dates: start: 20130105, end: 20130107
  60. BROMFENAC SODIUM HYDRATE [Concomitant]
     Route: 065
     Dates: start: 20140307, end: 20140401
  61. LEVOFLOXACIN HEMIHYDRATE [Concomitant]
     Active Substance: LEVOFLOXACIN
     Indication: ADVERSE EVENT
     Route: 065
     Dates: start: 20130117, end: 20130321
  62. BETAMETHASONE SODIUM PHOSPHATE [Concomitant]
     Active Substance: BETAMETHASONE SODIUM PHOSPHATE
     Indication: ADVERSE EVENT
     Route: 065
     Dates: start: 20130118, end: 20130307
  63. PL GRANULE [Concomitant]
     Indication: ADVERSE EVENT
     Route: 065
     Dates: start: 20130522, end: 20130526
  64. PL GRANULE [Concomitant]
     Route: 065
     Dates: start: 20140212, end: 20140217
  65. PL GRANULE [Concomitant]
     Route: 065
     Dates: start: 20150212, end: 20150217
  66. STONA [Concomitant]
     Active Substance: ACETAMINOPHEN\CHLORPHENIRAMINE\DEXTROMETHORPHAN\PHENYLEPHRINE
     Indication: ADVERSE EVENT
     Route: 065
     Dates: start: 20140107, end: 20140107
  67. CLOPERASTINE HYDROCHLORIDE [Concomitant]
     Active Substance: CLOPERASTINE HYDROCHLORIDE
     Indication: ADVERSE EVENT
     Route: 065
     Dates: start: 20140212, end: 20140217
  68. CLOPERASTINE HYDROCHLORIDE [Concomitant]
     Active Substance: CLOPERASTINE HYDROCHLORIDE
     Route: 065
     Dates: start: 20140604, end: 20140608
  69. EDOXABAN TOSILATE HYDRATE [Concomitant]
     Route: 065
     Dates: start: 20160213
  70. PROCHLORPERAZINE MALEATE. [Concomitant]
     Active Substance: PROCHLORPERAZINE MALEATE
     Indication: ADVERSE EVENT
     Route: 065
     Dates: start: 20150507, end: 20150515
  71. NORADRENALINE [Concomitant]
     Active Substance: NOREPINEPHRINE
     Indication: ADVERSE EVENT
     Route: 065
     Dates: start: 20160128, end: 20160130
  72. ADSORBIN [Concomitant]
     Active Substance: ALUMINUM SILICATE
     Indication: ADVERSE EVENT
     Route: 065
     Dates: start: 20160208, end: 20160215
  73. TEPRENONE [Concomitant]
     Active Substance: TEPRENONE
     Indication: ADVERSE EVENT
     Route: 065
     Dates: start: 20120827, end: 20150127
  74. ASPIRIN. [Concomitant]
     Active Substance: ASPIRIN
     Route: 065
     Dates: start: 20130515, end: 20141104
  75. BETAMETHASONE BUTYRATE PROPIONATE [Concomitant]
     Active Substance: BETAMETHASONE BUTYRATE PROPIONATE
     Indication: PRODUCT USED FOR UNKNOWN INDICATION
     Route: 065
     Dates: start: 20120114, end: 20120117
  76. FUROSEMIDE. [Concomitant]
     Active Substance: FUROSEMIDE
     Indication: ADVERSE EVENT
     Route: 065
     Dates: start: 20120911, end: 20140114
  77. ETODOLAC. [Concomitant]
     Active Substance: ETODOLAC
     Indication: ADVERSE EVENT
     Route: 065
     Dates: start: 20120911, end: 20120926
  78. INDOMETACIN [Concomitant]
     Active Substance: INDOMETHACIN
     Indication: ADVERSE EVENT
     Route: 065
     Dates: start: 20140412, end: 20160125
  79. LEVOFLOXACIN. [Concomitant]
     Active Substance: LEVOFLOXACIN
     Route: 065
     Dates: start: 20150309, end: 20150311
  80. LEVOFLOXACIN. [Concomitant]
     Active Substance: LEVOFLOXACIN
     Route: 065
     Dates: start: 20150812, end: 20150818
  81. CEFDINIR. [Concomitant]
     Active Substance: CEFDINIR
     Route: 065
     Dates: start: 20150422, end: 20150425
  82. FLUOROMETHOLONE. [Concomitant]
     Active Substance: FLUOROMETHOLONE
     Indication: ADVERSE EVENT
     Route: 065
     Dates: start: 20130308, end: 20130321
  83. DEQUALINIUM CHLORIDE [Concomitant]
     Active Substance: DEQUALINIUM CHLORIDE
     Indication: ADVERSE EVENT
     Route: 065
     Dates: start: 20130522, end: 20130526
  84. SODIUM CROMOGLICATE [Concomitant]
     Active Substance: CROMOLYN SODIUM
     Indication: ADVERSE EVENT
     Route: 065
     Dates: start: 20131204, end: 20141206
  85. PAVRON [Concomitant]
     Indication: ADVERSE EVENT
     Route: 065
     Dates: start: 20140209, end: 20140211
  86. PAVRON [Concomitant]
     Route: 065
     Dates: start: 20150106, end: 20150106
  87. CLOPERASTINE HYDROCHLORIDE [Concomitant]
     Active Substance: CLOPERASTINE HYDROCHLORIDE
     Route: 065
     Dates: start: 20170823, end: 20170827
  88. FURSULTIAMINE HYDROCHLORIDE [Concomitant]
     Active Substance: FURSULTIAMINE HYDROCHLORIDE
     Indication: ADVERSE EVENT
     Route: 065
     Dates: start: 20140507, end: 20160128
  89. BIOFERMIN R [Concomitant]
     Active Substance: BACILLUS SUBTILIS\LACTOBACILLUS ACIDOPHILUS\STREPTOCOCCUS FAECAIS
     Indication: ADVERSE EVENT
     Route: 065
     Dates: start: 20140702, end: 20150310
  90. ESOMEPRAZOLE MAGNESIUM HYDRATE [Concomitant]
     Active Substance: ESOMEPRAZOLE MAGNESIUM
     Route: 065
     Dates: start: 20160209, end: 20171223
  91. BETAMETHASONE VALERATE. [Concomitant]
     Active Substance: BETAMETHASONE VALERATE
     Indication: ADVERSE EVENT
     Route: 065
     Dates: start: 20141118, end: 20141121
  92. SAIREITOU [Concomitant]
     Indication: ADVERSE EVENT
     Route: 065
     Dates: start: 20150311, end: 20150507
  93. EDOXABAN TOSILATE HYDRATE [Concomitant]
     Indication: PRODUCT USED FOR UNKNOWN INDICATION
     Route: 065
     Dates: start: 20150326, end: 20160128
  94. MIYA-BM [Concomitant]
     Active Substance: CLOSTRIDIUM BUTYRICUM SPORES STRAIN M-55
     Indication: ADVERSE EVENT
     Route: 065
     Dates: start: 20150311, end: 20150812
  95. HYDROCORTISONE SODIUM SUCCINATE [Concomitant]
     Active Substance: HYDROCORTISONE SODIUM SUCCINATE
     Indication: ADVERSE EVENT
     Route: 065
     Dates: start: 20160127, end: 20160128
  96. GLUCOSE [Concomitant]
     Active Substance: DEXTROSE
     Route: 065
     Dates: start: 20160226, end: 20160226
  97. PROPOFOL. [Concomitant]
     Active Substance: PROPOFOL
     Indication: ADVERSE EVENT
     Route: 065
     Dates: start: 20160203, end: 20160206
  98. ALBUMIN TANNATE [Concomitant]
     Active Substance: ALBUMIN BOVINE\TANNIC ACID
     Route: 065
     Dates: start: 20160921
  99. RINDERON VG [Concomitant]
     Active Substance: BETAMETHASONE VALERATE\GENTAMICIN SULFATE
     Indication: PRODUCT USED FOR UNKNOWN INDICATION
     Route: 065
     Dates: start: 20160323, end: 20160329
  100. KETOTIFEN FUMARATE. [Concomitant]
     Active Substance: KETOTIFEN FUMARATE
     Indication: PRODUCT USED FOR UNKNOWN INDICATION
     Route: 065
     Dates: start: 20170830
  101. SODIUM PICOSULFATE [Concomitant]
     Active Substance: SODIUM PICOSULFATE
     Indication: ADVERSE EVENT
     Route: 065
     Dates: start: 20111202, end: 20140626
  102. PURIFIED SODIUM HYALURONATE [Concomitant]
     Indication: PRODUCT USED FOR UNKNOWN INDICATION
     Route: 065
     Dates: start: 20120424, end: 20120508
  103. ACETAZOLAMIDE. [Concomitant]
     Active Substance: ACETAZOLAMIDE
     Indication: ADVERSE EVENT
     Route: 065
     Dates: start: 20120508, end: 20120910
  104. SODIUM GUALENATE HYDRATE [Concomitant]
     Active Substance: SODIUM GUALENATE MONOHYDRATE
     Indication: ADVERSE EVENT
     Route: 065
     Dates: start: 20140604, end: 20140610
  105. DOMPERIDONE [Concomitant]
     Active Substance: DOMPERIDONE
     Indication: ADVERSE EVENT
     Route: 065
     Dates: start: 20150304, end: 20150306
  106. ECABET SODIUM HYDRATE [Concomitant]
     Indication: ADVERSE EVENT
     Route: 065
     Dates: start: 20150701, end: 20150826
  107. LOPERAMIDE HYDROCHLORIDE. [Concomitant]
     Active Substance: LOPERAMIDE HYDROCHLORIDE
     Indication: ADVERSE EVENT
     Route: 065
     Dates: start: 20150819, end: 20150821
  108. OLOPATADINE HYDROCHLORIDE. [Concomitant]
     Active Substance: OLOPATADINE HYDROCHLORIDE
     Indication: PRODUCT USED FOR UNKNOWN INDICATION
     Route: 065
     Dates: start: 20151203, end: 20160128
  109. ASCORBIC ACID. [Concomitant]
     Active Substance: ASCORBIC ACID
     Indication: ADVERSE EVENT
     Route: 065
     Dates: start: 20160127, end: 20160127
  110. DIMETHYL ISOPROPLAZULENE [Concomitant]
     Indication: ADVERSE EVENT
     Route: 065
     Dates: start: 20160128, end: 20160514
  111. WHITE PETROLATUM [Concomitant]
     Active Substance: PETROLATUM
     Indication: ADVERSE EVENT
     Route: 065
     Dates: start: 20160128, end: 20160514
  112. BFLUID [Concomitant]
     Active Substance: AMINO ACIDS\DEXTROSE\ELECTROLYTES NOS\VITAMINS
     Route: 065
     Dates: start: 20160210, end: 20160225
  113. NAFTOPIDIL [Concomitant]
     Active Substance: NAFTOPIDIL
     Route: 065
     Dates: start: 20160229, end: 20171223
  114. BIOLACTIS [Concomitant]
     Active Substance: LACTOBACILLUS CASEI
     Indication: ADVERSE EVENT
     Route: 065
     Dates: start: 20160210, end: 20160229
  115. GENTAMICIN SULFATE. [Concomitant]
     Active Substance: GENTAMICIN SULFATE
     Indication: PRODUCT USED FOR UNKNOWN INDICATION
     Route: 065
     Dates: start: 20160323, end: 20160329
  116. REVLIMID [Suspect]
     Active Substance: LENALIDOMIDE
     Indication: PLASMA CELL MYELOMA
     Dosage: 10 MILLIGRAM
     Route: 048
     Dates: start: 20111122
  117. TEPRENONE [Concomitant]
     Active Substance: TEPRENONE
     Indication: PRODUCT USED FOR UNKNOWN INDICATION
     Route: 065
     Dates: start: 20110525, end: 20120115
  118. BAKTAR [Concomitant]
     Active Substance: SULFAMETHOXAZOLE\TRIMETHOPRIM
     Indication: PRODUCT USED FOR UNKNOWN INDICATION
     Route: 065
     Dates: start: 20111122, end: 20160128
  119. FLUCONAZOLE. [Concomitant]
     Active Substance: FLUCONAZOLE
     Indication: PRODUCT USED FOR UNKNOWN INDICATION
     Route: 065
     Dates: start: 20111122
  120. MAGNESIUM OXIDE. [Concomitant]
     Active Substance: MAGNESIUM OXIDE
     Indication: PRODUCT USED FOR UNKNOWN INDICATION
     Route: 065
     Dates: start: 20111122, end: 20120731
  121. KETOPROFEN. [Concomitant]
     Active Substance: KETOPROFEN
     Indication: PRODUCT USED FOR UNKNOWN INDICATION
     Route: 065
     Dates: start: 20111130, end: 20111212
  122. HEPARINOID FROM ANIMAL ORGANS [Concomitant]
     Route: 065
     Dates: start: 20171129
  123. ZOLEDRONIC ACID HYDRATE [Concomitant]
     Active Substance: ZOLEDRONIC ACID
     Route: 065
     Dates: start: 20130911, end: 20130911
  124. ZOLEDRONIC ACID HYDRATE [Concomitant]
     Active Substance: ZOLEDRONIC ACID
     Route: 065
     Dates: start: 20140604, end: 20140604
  125. ACETAMINOPHEN. [Concomitant]
     Active Substance: ACETAMINOPHEN
     Route: 065
     Dates: start: 20120813, end: 20120826
  126. LEVOFLOXACIN. [Concomitant]
     Active Substance: LEVOFLOXACIN
     Route: 065
     Dates: start: 20160907, end: 20160920
  127. PRANOPROFEN [Concomitant]
     Active Substance: PRANOPROFEN
     Indication: ADVERSE EVENT
     Route: 065
     Dates: start: 20130322, end: 20140306
  128. PL GRANULE [Concomitant]
     Route: 065
     Dates: start: 20130703, end: 20130705
  129. PAVRON [Concomitant]
     Route: 065
     Dates: start: 20140531, end: 20140602
  130. AMBROXOL HYDROCHLORIDE [Concomitant]
     Active Substance: AMBROXOL HYDROCHLORIDE
     Indication: ADVERSE EVENT
     Route: 065
     Dates: start: 20140212, end: 20140217
  131. FEXOFENADINE HYDROCHLORIDE. [Concomitant]
     Active Substance: FEXOFENADINE HYDROCHLORIDE
     Indication: PRODUCT USED FOR UNKNOWN INDICATION
     Route: 065
     Dates: start: 20140226, end: 20151202
  132. BIOFERMIN R [Concomitant]
     Active Substance: BACILLUS SUBTILIS\LACTOBACILLUS ACIDOPHILUS\STREPTOCOCCUS FAECAIS
     Route: 065
     Dates: start: 20150813, end: 20150825
  133. HEPARIN SODIUM. [Concomitant]
     Active Substance: HEPARIN SODIUM
     Indication: ADVERSE EVENT
     Dosage: 15000 IU (INTERNATIONAL UNIT)
     Route: 065
     Dates: start: 20141105, end: 20141112
  134. URSODEOXYCHOLIC ACID [Concomitant]
     Active Substance: URSODIOL
     Indication: CHOLESTASIS
     Route: 065
     Dates: start: 20141107, end: 20141119
  135. URSODEOXYCHOLIC ACID [Concomitant]
     Active Substance: URSODIOL
     Indication: PRODUCT USED FOR UNKNOWN INDICATION
     Route: 065
     Dates: start: 20141120, end: 20160128
  136. SOLMAC [Concomitant]
     Indication: ABDOMINAL PAIN UPPER
     Route: 065
     Dates: start: 20150310, end: 20150310
  137. ECABET SODIUM HYDRATE [Concomitant]
     Route: 065
     Dates: start: 20151021, end: 20160128
  138. OMEPRAZOLE SODIUM HYDRATE [Concomitant]
     Indication: PRODUCT USED FOR UNKNOWN INDICATION
     Route: 065
     Dates: start: 20160128, end: 20160208
  139. DAIKENCYUTOU [Concomitant]
     Indication: ADVERSE EVENT
     Route: 065
     Dates: start: 20160130, end: 20160207
  140. PREDNISOLONE SODIUM SUCCINATE [Concomitant]
     Active Substance: PREDNISOLONE SODIUM SUCCINATE
     Route: 065
     Dates: start: 20160211, end: 20160414
  141. HALOPERIDOL. [Concomitant]
     Active Substance: HALOPERIDOL
     Indication: ADVERSE EVENT
     Route: 065
     Dates: start: 20160206, end: 20160208
  142. ALBUMIN TANNATE [Concomitant]
     Active Substance: ALBUMIN BOVINE\TANNIC ACID
     Indication: ADVERSE EVENT
     Route: 065
     Dates: start: 20160208, end: 20160215
  143. NAFTOPIDIL [Concomitant]
     Active Substance: NAFTOPIDIL
     Indication: PRODUCT USED FOR UNKNOWN INDICATION
     Route: 065
     Dates: start: 20160215, end: 20160221
  144. TRAZODONE HYDROCHLORIDE. [Concomitant]
     Active Substance: TRAZODONE HYDROCHLORIDE
     Indication: ADVERSE EVENT
     Route: 065
     Dates: start: 20160222, end: 20160514
  145. INSULIN GLARGINE [Concomitant]
     Active Substance: INSULIN GLARGINE
     Indication: ADVERSE EVENT
     Route: 065
     Dates: start: 20160224, end: 20160227
  146. DIPHENHYDRAMINE. [Concomitant]
     Active Substance: DIPHENHYDRAMINE
     Indication: PRODUCT USED FOR UNKNOWN INDICATION
     Route: 065
     Dates: start: 20161102, end: 20171128
  147. ELOTUZUMAB. [Suspect]
     Active Substance: ELOTUZUMAB
     Indication: PLASMA CELL MYELOMA
     Dosage: 10 MILLIGRAM/KILOGRAM
     Route: 041
     Dates: start: 20111122
  148. DEXAMETHASONE. [Suspect]
     Active Substance: DEXAMETHASONE
     Indication: PLASMA CELL MYELOMA
     Dosage: 8 MILLIGRAM
     Route: 041
     Dates: start: 20111122, end: 20160413
  149. POVIDONE-IODINE. [Concomitant]
     Active Substance: POVIDONE-IODINE
     Indication: PRODUCT USED FOR UNKNOWN INDICATION
     Route: 065
     Dates: start: 20100708, end: 20140603
  150. ASPIRIN. [Concomitant]
     Active Substance: ASPIRIN
     Route: 065
     Dates: start: 20150312, end: 20150325
  151. SENNOSIDE [Concomitant]
     Active Substance: SENNOSIDES
     Indication: ADVERSE EVENT
     Route: 065
     Dates: start: 20111207, end: 20140626
  152. EURAX H [Concomitant]
     Indication: ADVERSE EVENT
     Route: 065
     Dates: start: 20121219, end: 20121230
  153. FUROSEMIDE. [Concomitant]
     Active Substance: FUROSEMIDE
     Route: 065
     Dates: start: 20140924, end: 20150714
  154. LEVOFLOXACIN. [Concomitant]
     Active Substance: LEVOFLOXACIN
     Route: 065
     Dates: start: 20130509, end: 20130511
  155. LEVOFLOXACIN. [Concomitant]
     Active Substance: LEVOFLOXACIN
     Route: 065
     Dates: start: 20140108, end: 20140112
  156. LEVOFLOXACIN. [Concomitant]
     Active Substance: LEVOFLOXACIN
     Route: 065
     Dates: start: 20150108, end: 20150114
  157. LEVOFLOXACIN. [Concomitant]
     Active Substance: LEVOFLOXACIN
     Route: 065
     Dates: start: 20150225, end: 20150303
  158. CEFDITOREN PIVOXIL. [Concomitant]
     Active Substance: CEFDITOREN PIVOXIL
     Indication: PRODUCT USED FOR UNKNOWN INDICATION
     Route: 065
     Dates: start: 20130105, end: 20130107
  159. CEFAZOLIN SODIUM. [Concomitant]
     Active Substance: CEFAZOLIN SODIUM
     Indication: ADVERSE EVENT
     Route: 065
     Dates: start: 20130117, end: 20130124
  160. BROMFENAC SODIUM HYDRATE [Concomitant]
     Indication: ADVERSE EVENT
     Route: 065
     Dates: start: 20130117, end: 20130307
  161. PRANOPROFEN [Concomitant]
     Active Substance: PRANOPROFEN
     Route: 065
     Dates: start: 20140402, end: 20150701
  162. ESOMEPRAZOLE MAGNESIUM HYDRATE [Concomitant]
     Active Substance: ESOMEPRAZOLE MAGNESIUM
     Indication: PRODUCT USED FOR UNKNOWN INDICATION
     Route: 065
     Dates: start: 20141022, end: 20160128
  163. WARFARIN POTASSIUM [Concomitant]
     Active Substance: WARFARIN POTASSIUM
     Indication: ADVERSE EVENT
     Route: 065
     Dates: start: 20141106, end: 20141125
  164. ALCLOMETASONE DIPROPIONATE. [Concomitant]
     Active Substance: ALCLOMETASONE DIPROPIONATE
     Indication: ADVERSE EVENT
     Route: 065
     Dates: start: 20150729, end: 20150817
  165. ELEJECT [Concomitant]
     Indication: ADVERSE EVENT
     Route: 065
     Dates: start: 20160128, end: 20160131
  166. INSULIN HUMAN [Concomitant]
     Active Substance: INSULIN HUMAN
     Indication: ADVERSE EVENT
     Route: 065
     Dates: start: 20160128, end: 20160406
  167. BISACODYL. [Concomitant]
     Active Substance: BISACODYL
     Indication: ADVERSE EVENT
     Route: 065
     Dates: start: 20160131, end: 20160205
  168. BROTIZOLAM [Concomitant]
     Active Substance: BROTIZOLAM
     Indication: ADVERSE EVENT
     Route: 065
     Dates: start: 20160302, end: 20160514
  169. BETHANECHOL CHLORIDE. [Concomitant]
     Active Substance: BETHANECHOL CHLORIDE
     Indication: PRODUCT USED FOR UNKNOWN INDICATION
     Route: 065
     Dates: start: 20160307, end: 20161116
  170. REVLIMID [Suspect]
     Active Substance: LENALIDOMIDE
     Dosage: 10 MILLIGRAM
     Route: 048
     Dates: start: 20160323, end: 20160406
  171. DEXAMETHASONE. [Suspect]
     Active Substance: DEXAMETHASONE
     Dosage: 12 MILLIGRAM
     Route: 048
     Dates: start: 20111122
  172. SODIUM PICOSULFATE [Concomitant]
     Active Substance: SODIUM PICOSULFATE
     Route: 065
     Dates: start: 20160202, end: 20160203
  173. POSTERISAN [Concomitant]
     Active Substance: LIDOCAINE
     Indication: PRODUCT USED FOR UNKNOWN INDICATION
     Route: 065
     Dates: start: 20120701, end: 20120704
  174. PREGABALIN. [Concomitant]
     Active Substance: PREGABALIN
     Indication: NEUROPATHY PERIPHERAL
     Route: 065
     Dates: start: 20120730, end: 20120812
  175. ACETAMINOPHEN. [Concomitant]
     Active Substance: ACETAMINOPHEN
     Indication: PRODUCT USED FOR UNKNOWN INDICATION
     Route: 065
     Dates: start: 20160125, end: 20160127
  176. GABAPENTIN. [Concomitant]
     Active Substance: GABAPENTIN
     Indication: ADVERSE EVENT
     Route: 065
     Dates: start: 20120911, end: 20120926
  177. LEVOFLOXACIN. [Concomitant]
     Active Substance: LEVOFLOXACIN
     Indication: ADVERSE EVENT
     Route: 065
     Dates: start: 20121031, end: 20121102
  178. LEVOFLOXACIN. [Concomitant]
     Active Substance: LEVOFLOXACIN
     Route: 065
     Dates: start: 20131204, end: 20131208
  179. LEVOFLOXACIN. [Concomitant]
     Active Substance: LEVOFLOXACIN
     Route: 065
     Dates: start: 20140212, end: 20140216
  180. LEVOFLOXACIN. [Concomitant]
     Active Substance: LEVOFLOXACIN
     Route: 065
     Dates: start: 20170823, end: 20170827
  181. CEFDINIR. [Concomitant]
     Active Substance: CEFDINIR
     Indication: ADVERSE EVENT
     Route: 065
     Dates: start: 20130118, end: 20130127
  182. PL GRANULE [Concomitant]
     Route: 065
     Dates: start: 20140108, end: 20140113
  183. FURSULTIAMINE HYDROCHLORIDE [Concomitant]
     Active Substance: FURSULTIAMINE HYDROCHLORIDE
     Route: 065
     Dates: start: 20160407, end: 20170111
  184. SODIUM GUALENATE HYDRATE [Concomitant]
     Active Substance: SODIUM GUALENATE MONOHYDRATE
     Route: 065
     Dates: start: 20160128, end: 20171218
  185. KENKETSU VENILON-I [Concomitant]
     Active Substance: HUMAN IMMUNOGLOBULIN G
     Indication: ADVERSE EVENT
     Route: 065
     Dates: start: 20141105, end: 20141106
  186. HEPARIN SODIUM. [Concomitant]
     Active Substance: HEPARIN SODIUM
     Route: 065
     Dates: start: 20160203, end: 20160213
  187. MIYA-BM [Concomitant]
     Active Substance: CLOSTRIDIUM BUTYRICUM SPORES STRAIN M-55
     Route: 065
     Dates: start: 20160207, end: 20171223
  188. PERAMIVIR HYDRATE [Concomitant]
     Indication: ADVERSE EVENT
     Route: 065
     Dates: start: 20160125, end: 20160201
  189. METOCLOPRAMIDE HYDROCHLORIDE. [Concomitant]
     Active Substance: METOCLOPRAMIDE HYDROCHLORIDE
     Indication: ADVERSE EVENT
     Route: 065
     Dates: start: 20160130, end: 20160130
  190. PREDNISOLONE SODIUM SUCCINATE [Concomitant]
     Active Substance: PREDNISOLONE SODIUM SUCCINATE
     Indication: ADVERSE EVENT
     Route: 065
     Dates: start: 20160206, end: 20160210
  191. DEXMEDETOMINIDE HYDROCHLORIDE [Concomitant]
     Indication: ADVERSE EVENT
     Route: 065
     Dates: start: 20160206, end: 20160208
  192. RISPERIDONE. [Concomitant]
     Active Substance: RISPERIDONE
     Indication: ADVERSE EVENT
     Route: 065
     Dates: start: 20160208, end: 20160315
  193. BROMHEXINE HYDROCHLORIDE [Concomitant]
     Active Substance: BROMHEXINE HYDROCHLORIDE
     Indication: ADVERSE EVENT
     Route: 065
     Dates: start: 20160222
  194. DULOXETINE HYDROCHLORIDE. [Concomitant]
     Active Substance: DULOXETINE HYDROCHLORIDE
     Indication: NEUROPATHY PERIPHERAL
     Route: 065
     Dates: start: 20160322, end: 20171223
  195. SACCHARATED FERRIC OXIDE [Concomitant]
     Active Substance: IRON SUCROSE
     Indication: PRODUCT USED FOR UNKNOWN INDICATION
     Route: 065
     Dates: start: 20170419, end: 20170628

REACTIONS (3)
  - Organising pneumonia [Recovered/Resolved]
  - Pneumonia influenzal [Recovered/Resolved]
  - Hypoxia [Recovered/Resolved]

NARRATIVE: CASE EVENT DATE: 20160125
